FAERS Safety Report 7213284-1 (Version None)
Quarter: 2010Q4

REPORT INFORMATION
  Report Type: 
  Country: None (occurrence: None)
  Receive Date: 20101229
  Receipt Date: 20101222
  Transmission Date: 20110411
  Serious: Yes (Hospitalization)
  Sender: FDA-Public Use
  Company Number: 2010S1001083

PATIENT
  Age: 44 Year
  Sex: Male

DRUGS (11)
  1. LIVALO [Suspect]
     Indication: HYPERCHOLESTEROLAEMIA
     Dosage: 1X;PO
     Route: 048
     Dates: start: 20091031, end: 20101213
  2. PROPECIA [Concomitant]
  3. CLARITIN /00917501/ [Concomitant]
  4. NORVASC [Concomitant]
  5. LOXONIN /00890702/ [Concomitant]
  6. EPERISONE HYDROCHLORIDE [Concomitant]
  7. SEFTAC [Concomitant]
  8. CELESTAMINE /00008501/ [Concomitant]
  9. EVIPROSTAT /01150001/ [Concomitant]
  10. FLOMOX [Concomitant]
  11. PREV MEDS [Concomitant]

REACTIONS (2)
  - ASTHENIA [None]
  - RHABDOMYOLYSIS [None]
